FAERS Safety Report 23672864 (Version 1)
Quarter: 2024Q1

REPORT INFORMATION
  Report Type: Spontaneous
  Country: US (occurrence: US)
  Receive Date: 20240326
  Receipt Date: 20240326
  Transmission Date: 20240409
  Serious: No
  Sender: FDA-Public Use
  Company Number: US-BAYER-2024A037216

PATIENT
  Sex: Female

DRUGS (1)
  1. ESTRADIOL [Suspect]
     Active Substance: ESTRADIOL
     Dosage: 0.0375 MG/1D 4TTSM
     Route: 062
     Dates: start: 20240215

REACTIONS (2)
  - Device adhesion issue [None]
  - Wrong technique in device usage process [None]

NARRATIVE: CASE EVENT DATE: 20240201
